FAERS Safety Report 17251794 (Version 4)
Quarter: 2020Q1

REPORT INFORMATION
  Report Type: Spontaneous
  Country: FR (occurrence: FR)
  Receive Date: 20200109
  Receipt Date: 20200310
  Transmission Date: 20200409
  Serious: Yes (Other)
  Sender: FDA-Public Use
  Company Number: FR-MYLANLABS-2020M1001599

PATIENT
  Age: 70 Year
  Sex: Female

DRUGS (16)
  1. AMOXICILLIN. [Suspect]
     Active Substance: AMOXICILLIN
     Dosage: 3 GRAM, QD
     Dates: start: 20180305
  2. LEVOTHYROX [Concomitant]
     Active Substance: LEVOTHYROXINE
     Indication: PRODUCT USED FOR UNKNOWN INDICATION
     Dosage: UNK
     Route: 065
  3. PREDNISONE. [Suspect]
     Active Substance: PREDNISONE
     Dosage: 1 GRAM, QD
     Route: 048
     Dates: start: 20180305, end: 20180310
  4. ACETYLCYSTEINE. [Suspect]
     Active Substance: ACETYLCYSTEINE
     Indication: BRONCHITIS
     Dosage: 400 MILLIGRAM, QD
     Route: 048
     Dates: start: 20180305, end: 20180309
  5. ACETYLCYSTEINE. [Suspect]
     Active Substance: ACETYLCYSTEINE
     Dosage: 40 MILLIGRAM, QD
     Route: 048
     Dates: start: 20180305, end: 20180309
  6. SERESTA [Concomitant]
     Active Substance: OXAZEPAM
     Indication: PRODUCT USED FOR UNKNOWN INDICATION
     Dosage: UNK
     Route: 065
  7. ACETYLCYSTEINE. [Suspect]
     Active Substance: ACETYLCYSTEINE
     Dosage: 200 MILLIGRAM, QD
     Route: 048
     Dates: start: 20180305, end: 20180309
  8. MOMETASONE FUROATE. [Suspect]
     Active Substance: MOMETASONE FUROATE
     Indication: PRODUCT USED FOR UNKNOWN INDICATION
     Dosage: 100 MICROGRAM, QD
     Route: 048
     Dates: start: 20180305
  9. OXOMEMAZINE [Suspect]
     Active Substance: OXOMEMAZINE
     Dosage: 1 GRAM, QD
     Route: 048
     Dates: start: 20180305, end: 20180310
  10. MOMETASONE FUROATE. [Suspect]
     Active Substance: MOMETASONE FUROATE
     Dosage: 50 MICROGRAM PER GRAM
     Route: 048
     Dates: start: 20180305
  11. PREDNISONE. [Suspect]
     Active Substance: PREDNISONE
     Indication: BRONCHITIS
     Dosage: 40 MILLIGRAM, QD
     Route: 048
     Dates: start: 20180305, end: 20180307
  12. PARACETAMOL [Suspect]
     Active Substance: ACETAMINOPHEN
     Dosage: 3 GRAM, QD
     Route: 048
     Dates: start: 20180305, end: 20180310
  13. AMOXICILLIN. [Suspect]
     Active Substance: AMOXICILLIN
     Indication: BRONCHITIS
     Dosage: 1 GRAM, QD
     Route: 048
     Dates: start: 20180305, end: 20180310
  14. PARACETAMOL [Suspect]
     Active Substance: ACETAMINOPHEN
     Indication: BRONCHITIS
     Dosage: 1 GRAM, QD
     Route: 048
     Dates: start: 20180305, end: 20180310
  15. OXOMEMAZINE [Suspect]
     Active Substance: OXOMEMAZINE
     Indication: BRONCHITIS
     Dosage: 160 MILLIGRAM, QD
     Route: 048
     Dates: start: 20180305, end: 20180310
  16. PARACETAMOL [Suspect]
     Active Substance: ACETAMINOPHEN
     Dosage: 3 GRAM PER GRAM, QD
     Route: 048
     Dates: start: 20180305, end: 20180310

REACTIONS (4)
  - Skin burning sensation [Recovered/Resolved]
  - Rash maculo-papular [Recovered/Resolved]
  - Rash [Recovered/Resolved]
  - Pruritus [Recovered/Resolved]

NARRATIVE: CASE EVENT DATE: 20190309
